FAERS Safety Report 8848292 (Version 2)
Quarter: 2012Q4

REPORT INFORMATION
  Report Type: Report from Study
  Country: AU (occurrence: AU)
  Receive Date: 20121018
  Receipt Date: 20121029
  Transmission Date: 20130627
  Serious: No
  Sender: FDA-Public Use
  Company Number: AU-JNJFOC-20121009366

PATIENT
  Sex: Male

DRUGS (2)
  1. REMICADE [Suspect]
     Indication: CROHN^S DISEASE
     Dosage: Infusion period 2 Hrs.
Conflictingly units were reported as mg/kg.
     Route: 042
     Dates: start: 20120919
  2. REMICADE [Suspect]
     Indication: CROHN^S DISEASE
     Route: 042
     Dates: start: 20100113

REACTIONS (2)
  - Herpes zoster [Recovering/Resolving]
  - Headache [Recovering/Resolving]
